FAERS Safety Report 9973938 (Version 1)
Quarter: 2014Q1

REPORT INFORMATION
  Report Type: Report from Study
  Country: US (occurrence: US)
  Receive Date: 20140306
  Receipt Date: 20140306
  Transmission Date: 20141002
  Serious: No
  Sender: FDA-Public Use
  Company Number: US-ABBVIE-13P-163-1159515-00

PATIENT
  Age: 28 Year
  Sex: Female

DRUGS (11)
  1. HUMIRA [Suspect]
     Indication: CROHN^S DISEASE
     Dosage: 160 MG LOADING DOSE
     Dates: start: 20131001, end: 20131001
  2. HUMIRA [Suspect]
     Dosage: 80 MG LOADING DOSE
     Dates: start: 20131015, end: 20131015
  3. HUMIRA [Suspect]
     Dates: start: 20131029
  4. IMURAN [Concomitant]
     Indication: CROHN^S DISEASE
  5. TRAMADOL [Concomitant]
     Indication: PAIN
  6. NORCO [Concomitant]
     Indication: ARTHRALGIA
     Dosage: 5/325 MG
  7. LORAZEPAM [Concomitant]
     Indication: ANXIETY
  8. LOESTRIN [Concomitant]
     Indication: CONTRACEPTION
  9. RETINOL [Concomitant]
     Indication: SKIN DISORDER
     Route: 061
  10. CLOBETASOL [Concomitant]
     Indication: PUSTULAR PSORIASIS
     Route: 061
  11. PREDNISONE [Concomitant]
     Indication: CROHN^S DISEASE
     Dates: end: 20131018

REACTIONS (4)
  - Device malfunction [Unknown]
  - Incorrect dose administered [Unknown]
  - Injection site bruising [Not Recovered/Not Resolved]
  - Injection site pain [Not Recovered/Not Resolved]
